FAERS Safety Report 6691430-6 (Version None)
Quarter: 2010Q2

REPORT INFORMATION
  Report Type: 
  Country: None (occurrence: None)
  Receive Date: 20100414
  Receipt Date: 20090714
  Transmission Date: 20101027
  Serious: Yes (Other)
  Sender: FDA-Public Use
  Company Number: 09-320

PATIENT
  Age: 68 Year
  Sex: Female

DRUGS (2)
  1. ALEVE [Suspect]
     Indication: MUSCULOSKELETAL PAIN
     Dosage: 220 MG, DAILY, ORAL
     Route: 048
     Dates: start: 20090706
  2. PROZAC [Concomitant]

REACTIONS (5)
  - OEDEMA MOUTH [None]
  - PRURITUS [None]
  - RECTAL HAEMORRHAGE [None]
  - SWELLING [None]
  - URTICARIA [None]
